FAERS Safety Report 6971090-7 (Version None)
Quarter: 2010Q3

REPORT INFORMATION
  Report Type: 
  Country: None (occurrence: None)
  Receive Date: 20100908
  Receipt Date: 20100825
  Transmission Date: 20110219
  Serious: Yes (Other)
  Sender: FDA-Public Use
  Company Number: US-JNJFOC-20100804373

PATIENT
  Sex: Female
  Weight: 113.4 kg

DRUGS (5)
  1. REMICADE [Suspect]
     Indication: RHEUMATOID ARTHRITIS
     Route: 042
  2. REMICADE [Suspect]
     Route: 042
  3. REMICADE [Suspect]
     Route: 042
  4. LEVOTHYROXINE [Concomitant]
     Indication: THYROID DISORDER
  5. ASTHMA INHALER [Concomitant]
     Indication: ASTHMA
     Route: 055

REACTIONS (7)
  - ADVERSE REACTION [None]
  - BACK PAIN [None]
  - DYSPNOEA [None]
  - INFUSION RELATED REACTION [None]
  - NAUSEA [None]
  - PAIN IN EXTREMITY [None]
  - VASCULAR ACCESS COMPLICATION [None]
